FAERS Safety Report 9888444 (Version 2)
Quarter: 2014Q2

REPORT INFORMATION
  Report Type: Spontaneous
  Country: FR (occurrence: FR)
  Receive Date: 20140211
  Receipt Date: 20140418
  Transmission Date: 20141212
  Serious: Yes (Life-Threatening, Hospitalization)
  Sender: FDA-Public Use
  Company Number: FR-PFIZER INC-2014032740

PATIENT
  Age: 63 Year
  Sex: Male

DRUGS (5)
  1. MEDROL [Suspect]
     Dosage: 16 MG
     Route: 048
     Dates: start: 20130821, end: 20130826
  2. ADVIL [Suspect]
     Dosage: 5%
     Route: 003
  3. OMEPRAZOLE [Suspect]
     Dosage: 20 MG, 1X/DAY
     Route: 048
     Dates: start: 20130821, end: 20130826
  4. TRAMADOL HYDROCHLORIDE [Suspect]
     Dosage: UNK
     Route: 048
     Dates: start: 20130821, end: 20130826
  5. DAFALGAN CODEINE [Suspect]
     Dosage: UNK
     Route: 048
     Dates: start: 20130821, end: 20130826

REACTIONS (1)
  - Cellulitis [Recovered/Resolved]
